FAERS Safety Report 12457934 (Version 1)
Quarter: 2016Q2

REPORT INFORMATION
  Report Type: Spontaneous
  Country: KR (occurrence: KR)
  Receive Date: 20160612
  Receipt Date: 20160612
  Transmission Date: 20160815
  Serious: Yes (Other)
  Sender: FDA-Public Use
  Company Number: KR-BAXTER-2016BAX029663

PATIENT
  Age: 21 Year
  Sex: Male
  Weight: 79 kg

DRUGS (2)
  1. BAXTER SEVOFLURANE [Suspect]
     Active Substance: SEVOFLURANE
     Indication: GENERAL ANAESTHESIA
  2. BAXTER SEVOFLURANE [Suspect]
     Active Substance: SEVOFLURANE
     Indication: MAINTENANCE OF ANAESTHESIA
     Dosage: 2.0-2.5%
     Route: 055

REACTIONS (5)
  - Delirium [Recovered/Resolved]
  - Aspartate aminotransferase increased [Recovered/Resolved]
  - Alanine aminotransferase increased [Recovered/Resolved]
  - Cholecystitis [Recovered/Resolved]
  - Pyrexia [Recovered/Resolved]
